FAERS Safety Report 15896021 (Version 1)
Quarter: 2019Q1

REPORT INFORMATION
  Report Type: Spontaneous
  Country: US (occurrence: US)
  Receive Date: 20190131
  Receipt Date: 20190131
  Transmission Date: 20190417
  Serious: Yes (Other)
  Sender: FDA-Public Use
  Company Number: US-SA-2017SA257671

PATIENT
  Age: 72 Year
  Sex: Female
  Weight: 68 kg

DRUGS (8)
  1. SUCRALFATE. [Concomitant]
     Active Substance: SUCRALFATE
  2. TAXOTERE [Suspect]
     Active Substance: DOCETAXEL
     Indication: BREAST CANCER FEMALE
     Dosage: 170 MG,Q3W
     Route: 042
     Dates: start: 20050323, end: 20050323
  3. CYTOXAN [Concomitant]
     Active Substance: CYCLOPHOSPHAMIDE
  4. PROTONIX [OMEPRAZOLE] [Concomitant]
     Active Substance: OMEPRAZOLE
  5. TAXOTERE [Suspect]
     Active Substance: DOCETAXEL
     Dosage: 170 MG,Q3W
     Route: 042
     Dates: start: 20050525, end: 20050525
  6. ASPIRIN BAYER [Concomitant]
     Active Substance: ASPIRIN
  7. SYNTHROID [Concomitant]
     Active Substance: LEVOTHYROXINE SODIUM
  8. ADRIAMYCIN [Concomitant]
     Active Substance: DOXORUBICIN HYDROCHLORIDE

REACTIONS (1)
  - Alopecia [Recovering/Resolving]

NARRATIVE: CASE EVENT DATE: 20170912
